FAERS Safety Report 7980591-4 (Version None)
Quarter: 2011Q4

REPORT INFORMATION
  Report Type: 
  Country: None (occurrence: None)
  Receive Date: 20111214
  Receipt Date: 20111205
  Transmission Date: 20120403
  Serious: Yes (Hospitalization, Other)
  Sender: FDA-Public Use
  Company Number: US-ASTRAZENECA-2010SE61080

PATIENT
  Age: 65 Year
  Sex: Male

DRUGS (3)
  1. NEXIUM [Suspect]
     Route: 048
  2. SYMBICORT [Suspect]
     Route: 055
  3. ADVAIR DISKUS 100/50 [Concomitant]

REACTIONS (4)
  - LIFE EXPECTANCY SHORTENED [None]
  - DYSPNOEA [None]
  - RESPIRATORY DISORDER [None]
  - PNEUMONIA [None]
